FAERS Safety Report 5415174-3 (Version None)
Quarter: 2007Q3

REPORT INFORMATION
  Report Type: 
  Country: None (occurrence: None)
  Receive Date: 20070815
  Receipt Date: 20070723
  Transmission Date: 20080115
  Serious: No
  Sender: FDA-Public Use
  Company Number: A0663710A

PATIENT
  Age: 87 Year
  Sex: Male

DRUGS (3)
  1. COREG CR [Suspect]
     Dosage: 10MG PER DAY
     Route: 048
  2. SPIRONOLACTONE [Suspect]
  3. LASIX [Suspect]

REACTIONS (4)
  - LIMB INJURY [None]
  - MUSCLE DISORDER [None]
  - MUSCLE SPASMS [None]
  - MUSCULAR WEAKNESS [None]
